FAERS Safety Report 5900654-4 (Version None)
Quarter: 2008Q3

REPORT INFORMATION
  Report Type: 
  Country: None (occurrence: None)
  Receive Date: 20080926
  Receipt Date: 20080915
  Transmission Date: 20090109
  Serious: Yes (Other)
  Sender: FDA-Public Use
  Company Number: AU-PFIZER INC-2008079004

PATIENT
  Age: 59 Year
  Sex: Female

DRUGS (2)
  1. PRAZOSIN HCL [Suspect]
     Indication: BLOOD PRESSURE
     Route: 048
     Dates: start: 20080902, end: 20080905
  2. CARTIA XT [Concomitant]

REACTIONS (6)
  - CONFUSIONAL STATE [None]
  - DIZZINESS [None]
  - FATIGUE [None]
  - MUSCULAR WEAKNESS [None]
  - PALPITATIONS [None]
  - SPEECH DISORDER [None]
